FAERS Safety Report 21852161 (Version 2)
Quarter: 2023Q1

REPORT INFORMATION
  Report Type: Report from Study
  Country: CZ (occurrence: CZ)
  Receive Date: 20230112
  Receipt Date: 20230120
  Transmission Date: 20230417
  Serious: Yes (Hospitalization)
  Sender: FDA-Public Use
  Company Number: CZ-002147023-NVSC2023CZ004663

PATIENT
  Age: 70 Year
  Sex: Female

DRUGS (23)
  1. TRAMETINIB [Suspect]
     Active Substance: TRAMETINIB
     Indication: Colorectal cancer
     Dosage: 1.5 MG
     Route: 048
     Dates: start: 20220623, end: 20221220
  2. NIVOLUMAB [Suspect]
     Active Substance: NIVOLUMAB
     Indication: Colorectal cancer
     Dosage: 372 MG
     Route: 042
     Dates: start: 20220623, end: 20221207
  3. IPILIMUMAB [Suspect]
     Active Substance: IPILIMUMAB
     Indication: Colorectal cancer
     Dosage: 62 MG
     Route: 042
     Dates: start: 20220623, end: 20221207
  4. OMEPRAZOLE [Concomitant]
     Active Substance: OMEPRAZOLE
     Indication: Product used for unknown indication
     Dosage: 20 MG
     Route: 048
     Dates: start: 20221103
  5. MINERAL OIL [Concomitant]
     Active Substance: MINERAL OIL
     Indication: Dermatitis allergic
     Dosage: UNK
     Route: 061
     Dates: start: 20220921
  6. PREDNISONE [Concomitant]
     Active Substance: PREDNISONE
     Indication: Pruritus
     Dosage: 10 MG
     Route: 048
     Dates: start: 20221013
  7. CLOBETASOL [Concomitant]
     Active Substance: CLOBETASOL
     Indication: Dermatitis allergic
     Dosage: UNK
     Route: 061
     Dates: start: 20221019
  8. CLOBETASOL [Concomitant]
     Active Substance: CLOBETASOL
     Indication: Pruritus
  9. CLOBETASOL [Concomitant]
     Active Substance: CLOBETASOL
     Indication: Rash papular
  10. DEXTROSE [Concomitant]
     Active Substance: DEXTROSE
     Indication: Product used for unknown indication
     Dosage: UNK
     Route: 042
     Dates: start: 20221221, end: 20221223
  11. PERINDOPRIL ARGININE [Concomitant]
     Active Substance: PERINDOPRIL ARGININE
     Indication: Hypertension
     Dosage: 5 MG
     Route: 048
     Dates: start: 20221221
  12. MUPIROCIN [Concomitant]
     Active Substance: MUPIROCIN
     Indication: Dermatitis allergic
     Dosage: UNK
     Route: 065
     Dates: start: 20220812, end: 20220831
  13. MUPIROCIN [Concomitant]
     Active Substance: MUPIROCIN
     Indication: Rash papular
  14. UREA [Concomitant]
     Active Substance: UREA
     Indication: Dermatitis allergic
     Dosage: UNK
     Route: 065
     Dates: start: 20220812, end: 20220906
  15. UREA [Concomitant]
     Active Substance: UREA
     Indication: Rash papular
  16. CLOBETASOL PROPIONATE [Concomitant]
     Active Substance: CLOBETASOL PROPIONATE
     Indication: Dermatitis allergic
     Dosage: UNK
     Route: 065
     Dates: start: 20221019
  17. CLOBETASOL PROPIONATE [Concomitant]
     Active Substance: CLOBETASOL PROPIONATE
     Indication: Rash papular
  18. HYDROCORTISONE [Concomitant]
     Active Substance: HYDROCORTISONE
     Indication: Rash papular
     Dosage: 200 MG, ONCE
     Route: 042
     Dates: start: 20220831, end: 20221018
  19. ZINC [Concomitant]
     Active Substance: ZINC
     Indication: Rash papular
     Dosage: UNK
     Route: 061
     Dates: start: 20220821, end: 20220831
  20. BISULEPIN [Concomitant]
     Active Substance: BISULEPIN
     Indication: Rash papular
     Dosage: UNK
     Route: 065
     Dates: start: 20220821, end: 20220906
  21. PREDNISONE [Concomitant]
     Active Substance: PREDNISONE
     Indication: Pruritus
     Dosage: 20 MG, FOR FIVE DAYS
     Route: 065
     Dates: start: 20220831, end: 20221018
  22. MOMETASONE [Concomitant]
     Active Substance: MOMETASONE
     Indication: Rash papular
     Dosage: UNK
     Route: 065
     Dates: start: 20220831, end: 20221018
  23. BISULEPIN [Concomitant]
     Active Substance: BISULEPIN
     Indication: Pruritus
     Dosage: 2 MG
     Route: 048
     Dates: start: 20221221

REACTIONS (1)
  - Rash papular [Not Recovered/Not Resolved]

NARRATIVE: CASE EVENT DATE: 20221221
